FAERS Safety Report 10128649 (Version 2)
Quarter: 2020Q1

REPORT INFORMATION
  Report Type: Spontaneous
  Country: DK (occurrence: DK)
  Receive Date: 20140428
  Receipt Date: 20200115
  Transmission Date: 20200409
  Serious: Yes (Death, Congenital Anomaly)
  Sender: FDA-Public Use
  Company Number: DK-SUN PHARMACEUTICAL INDUSTRIES LTD-2014SUN00892

PATIENT

DRUGS (1)
  1. LEVETIRACETAM. [Suspect]
     Active Substance: LEVETIRACETAM
     Indication: EPILEPSY
     Dosage: 500 MILLIGRAM, DAILY
     Route: 064

REACTIONS (3)
  - Coarctation of the aorta [Fatal]
  - Atrial septal defect [Fatal]
  - Maternal exposure during pregnancy [Recovered/Resolved]
